FAERS Safety Report 6919128 (Version 5)
Quarter: 2015Q3

REPORT INFORMATION
  Report Type: Spontaneous
  Country: DK (occurrence: DK)
  Receive Date: 20090225
  Receipt Date: 20150902
  Transmission Date: 20151125
  Serious: Yes (Death, Hospitalization, Congenital Anomaly)
  Sender: FDA-Public Use
  Company Number: PHHY2009DK06233

PATIENT
  Age: 8 Day
  Sex: Female

DRUGS (1)
  1. SANDOSTATIN LAR DEPOT [Suspect]
     Active Substance: OCTREOTIDE ACETATE
     Indication: FOETAL EXPOSURE DURING PREGNANCY
     Dosage: 30 MG INTRAMUSCULAR INJECTIONS, EVERY FOUR WEEKS MATERNAL DOSE TRANSPLACENTAL
     Route: 064

REACTIONS (9)
  - Acute abdomen [Unknown]
  - Intestinal ischaemia [Fatal]
  - General physical health deterioration [Unknown]
  - Sepsis neonatal [Fatal]
  - Low birth weight baby [Unknown]
  - Necrotising enterocolitis neonatal [Fatal]
  - Congenital anomaly [Unknown]
  - Blood glucose decreased [Unknown]
  - Foetal exposure during pregnancy [Unknown]

NARRATIVE: CASE EVENT DATE: 20090122
